FAERS Safety Report 22334788 (Version 1)
Quarter: 2023Q2

REPORT INFORMATION
  Report Type: Other
  Country: US (occurrence: None)
  Receive Date: 20230517
  Receipt Date: 20230517
  Transmission Date: 20230721
  Serious: No
  Sender: FDA-Public Use
  Company Number: US-ROCHE-3133509

PATIENT
  Age: 2 Year
  Sex: Male

DRUGS (4)
  1. TOCILIZUMAB [Suspect]
     Active Substance: TOCILIZUMAB
     Indication: Deafness neurosensory
     Route: 058
  2. VANCOMYCIN [Concomitant]
     Active Substance: VANCOMYCIN
  3. AMPICILLIN [Concomitant]
     Active Substance: AMPICILLIN
  4. CEFTRIAXONE [Concomitant]
     Active Substance: CEFTRIAXONE

REACTIONS (2)
  - Off label use [Unknown]
  - No adverse event [Unknown]
